FAERS Safety Report 14759177 (Version 3)
Quarter: 2018Q2

REPORT INFORMATION
  Report Type: Report from Study
  Country: ES (occurrence: ES)
  Receive Date: 20180413
  Receipt Date: 20180518
  Transmission Date: 20180711
  Serious: Yes (Hospitalization)
  Sender: FDA-Public Use
  Company Number: ES-EISAI MEDICAL RESEARCH-EC-2018-037939

PATIENT
  Age: 64 Year
  Sex: Male
  Weight: 69.4 kg

DRUGS (2)
  1. EVEROLIMUS. [Suspect]
     Active Substance: EVEROLIMUS
     Indication: RENAL CELL CARCINOMA
     Route: 048
     Dates: start: 20180327, end: 20180418
  2. LENVATINIB [Suspect]
     Active Substance: LENVATINIB
     Indication: RENAL CELL CARCINOMA
     Dosage: BLINDED DOSAGE
     Route: 048
     Dates: start: 20180327, end: 20180418

REACTIONS (1)
  - Diarrhoea [Recovering/Resolving]

NARRATIVE: CASE EVENT DATE: 20180408
